FAERS Safety Report 7403966-0 (Version None)
Quarter: 2011Q2

REPORT INFORMATION
  Report Type: 
  Country: None (occurrence: None)
  Receive Date: 20110408
  Receipt Date: 20110331
  Transmission Date: 20111010
  Serious: Yes (Death)
  Sender: FDA-Public Use
  Company Number: US-PURDUE-USA-2011-0062198

PATIENT
  Age: 54 Year
  Sex: Male

DRUGS (2)
  1. HEROIN [Suspect]
     Indication: PRODUCT USED FOR UNKNOWN INDICATION
  2. OXYCONTIN [Suspect]
     Indication: PAIN

REACTIONS (1)
  - OVERDOSE [None]
